FAERS Safety Report 24424059 (Version 3)
Quarter: 2024Q4

REPORT INFORMATION
  Report Type: Report from Study
  Country: EG (occurrence: EG)
  Receive Date: 20241010
  Receipt Date: 20241024
  Transmission Date: 20250115
  Serious: Yes (Other)
  Sender: NOVARTIS
  Company Number: EG-002147023-NVSC2023EG092141

PATIENT
  Age: 43 Year
  Sex: Female

DRUGS (10)
  1. COSENTYX [Suspect]
     Active Substance: SECUKINUMAB
     Indication: Psoriatic arthropathy
     Dosage: 150 MG, QW (1 PREFILLED PEN WEEKLY FOR ONE MONTH)
     Route: 058
     Dates: start: 20230403
  2. COSENTYX [Suspect]
     Active Substance: SECUKINUMAB
     Indication: Skin lesion
     Dosage: 150 MG, QMO (AS AN OFF-LABEL LOADING DOSE THEN 1 PREFILLED PEN MONTHLY AS A MAINTENANCE DOSE)
     Route: 058
  3. COSENTYX [Suspect]
     Active Substance: SECUKINUMAB
     Indication: Psoriasis
     Dosage: 150 MG, QW (1 PEN EVERY MONTH)
     Route: 058
     Dates: start: 20230418
  4. COSENTYX [Suspect]
     Active Substance: SECUKINUMAB
     Dosage: 300 MG, QMO
     Route: 058
  5. METHOTREXATE [Suspect]
     Active Substance: METHOTREXATE
     Indication: Psoriatic arthropathy
     Dosage: 4 DOSAGE FORM, QW
     Route: 048
     Dates: start: 202208
  6. METHOTREXATE [Suspect]
     Active Substance: METHOTREXATE
     Indication: Skin lesion
  7. TIZANIDINE [Suspect]
     Active Substance: TIZANIDINE
     Indication: Psoriatic arthropathy
     Dosage: 2 MG, PRN (1 TAB AS NEEDED)
     Route: 048
     Dates: start: 202303
  8. TIZANIDINE [Suspect]
     Active Substance: TIZANIDINE
     Indication: Skin lesion
  9. ITOPRIDE [Concomitant]
     Active Substance: ITOPRIDE
     Indication: Gastrooesophageal reflux disease
     Dosage: 2 DOSAGE FORM, BID (SUMMER)
     Route: 065
     Dates: start: 2021
  10. NEXIUM [Concomitant]
     Active Substance: ESOMEPRAZOLE MAGNESIUM
     Indication: Gastrooesophageal reflux disease
     Dosage: 1 DOSAGE FORM, QD (SUMMER)
     Route: 065
     Dates: start: 2021

REACTIONS (8)
  - Peripheral swelling [Recovered/Resolved]
  - Dysstasia [Unknown]
  - Psoriatic arthropathy [Not Recovered/Not Resolved]
  - Bone pain [Not Recovered/Not Resolved]
  - Arthralgia [Unknown]
  - Vulvovaginal candidiasis [Recovering/Resolving]
  - Back pain [Not Recovered/Not Resolved]
  - Off label use [Not Recovered/Not Resolved]

NARRATIVE: CASE EVENT DATE: 20240101
